FAERS Safety Report 7785654-4 (Version None)
Quarter: 2011Q3

REPORT INFORMATION
  Report Type: 
  Country: None (occurrence: None)
  Receive Date: 20110929
  Receipt Date: 20110929
  Transmission Date: 20111222
  Serious: Yes (Other)
  Sender: FDA-Public Use
  Company Number: None

PATIENT
  Age: 53 Year
  Sex: Female
  Weight: 47.173 kg

DRUGS (1)
  1. CYMBALTA [Suspect]
     Indication: DEPRESSION
     Dosage: ONE
     Route: 048
     Dates: start: 20110615, end: 20110722

REACTIONS (9)
  - LOSS OF CONSCIOUSNESS [None]
  - FALL [None]
  - DROP ATTACKS [None]
  - EPISTAXIS [None]
  - CONVULSION [None]
  - PERIORBITAL HAEMATOMA [None]
  - FACE INJURY [None]
  - SKELETAL INJURY [None]
  - LOSS OF EMPLOYMENT [None]
